FAERS Safety Report 8106988-X (Version None)
Quarter: 2011Q4

REPORT INFORMATION
  Report Type: 
  Country: None (occurrence: None)
  Receive Date: 20111223
  Receipt Date: 20110201
  Transmission Date: 20120403
  Serious: Yes (Other)
  Sender: FDA-Public Use
  Company Number: PHHY2010US79081

PATIENT
  Age: 31 Year
  Sex: Female

DRUGS (5)
  1. FEMARA [Suspect]
     Indication: BREAST CANCER
     Dosage: 2.5 MG, QD, ORAL
     Route: 048
     Dates: start: 20100901
  2. FLONASE [Concomitant]
  3. AMBIEN [Concomitant]
  4. MULTIVITAMIN [Concomitant]
  5. MEGACE [Concomitant]

REACTIONS (6)
  - ASPARTATE AMINOTRANSFERASE INCREASED [None]
  - BLOOD PRESSURE DECREASED [None]
  - ALANINE AMINOTRANSFERASE INCREASED [None]
  - NEOPLASM MALIGNANT [None]
  - SINUS HEADACHE [None]
  - PLATELET COUNT DECREASED [None]
